FAERS Safety Report 8781366 (Version 5)
Quarter: 2013Q2

REPORT INFORMATION
  Report Type: Spontaneous
  Country: US (occurrence: US)
  Receive Date: 20120913
  Receipt Date: 20130521
  Transmission Date: 20140414
  Serious: Yes (Other)
  Sender: FDA-Public Use
  Company Number: US-PFIZER INC-2012225213

PATIENT
  Age: 66 Year
  Sex: Female
  Weight: 74.83 kg

DRUGS (7)
  1. LYRICA [Suspect]
     Indication: FIBROMYALGIA
     Dosage: 75 MG, 2X/DAY
     Route: 048
  2. LYRICA [Suspect]
     Dosage: 75 MG, 2X/DAY
     Route: 048
  3. METOPROLOL TARTRATE [Concomitant]
     Indication: HYPERTENSION
     Dosage: 50 MG, 2X/DAY
  4. PANTOPRAZOLE SODIUM [Concomitant]
     Dosage: 40 MG, 1X/DAY
  5. ULTRAM [Concomitant]
     Indication: BACK PAIN
     Dosage: 50 MG, 3X/DAY
  6. TRICOR [Concomitant]
     Dosage: 145 MG, 1X/DAY
  7. LORTAB [Concomitant]
     Indication: BACK PAIN
     Dosage: 10 MG, AS NEEDED

REACTIONS (10)
  - Fall [Unknown]
  - Hip fracture [Unknown]
  - Spinal fracture [Unknown]
  - Upper limb fracture [Unknown]
  - Gait disturbance [Unknown]
  - Joint injury [Recovering/Resolving]
  - Ligament sprain [Recovering/Resolving]
  - Fall [Recovering/Resolving]
  - Vision blurred [Recovered/Resolved]
  - Cataract [Unknown]
